FAERS Safety Report 25498756 (Version 1)
Quarter: 2025Q3

REPORT INFORMATION
  Report Type: Report from Study
  Country: US (occurrence: US)
  Receive Date: 20250701
  Receipt Date: 20250701
  Transmission Date: 20251021
  Serious: Yes (Other)
  Sender: ELI LILLY AND COMPANY
  Company Number: US-ELI_LILLY_AND_COMPANY-US202506021386

PATIENT
  Age: 68 Year
  Sex: Female

DRUGS (1)
  1. KISUNLA [Suspect]
     Active Substance: DONANEMAB-AZBT
     Indication: Product used for unknown indication
     Route: 065
     Dates: start: 20250609

REACTIONS (7)
  - Lymphadenopathy [Unknown]
  - Eye pain [Unknown]
  - Swelling face [Unknown]
  - Swelling of eyelid [Unknown]
  - Oropharyngeal pain [Unknown]
  - Headache [Recovering/Resolving]
  - Dizziness [Unknown]

NARRATIVE: CASE EVENT DATE: 20250610
